FAERS Safety Report 15661746 (Version 1)
Quarter: 2018Q4

REPORT INFORMATION
  Report Type: Report from Study
  Country: None (occurrence: CA)
  Receive Date: 20181127
  Receipt Date: 20181127
  Transmission Date: 20190205
  Serious: Yes (Other)
  Sender: FDA-Public Use
  Company Number: CA-ABBVIE-18K-028-2290664-00

PATIENT
  Sex: Female

DRUGS (2)
  1. HUMIRA [Suspect]
     Active Substance: ADALIMUMAB
     Indication: CROHN^S DISEASE
     Route: 058
     Dates: start: 20170113, end: 20181102
  2. SYNVISC [Concomitant]
     Active Substance: HYLAN G-F 20
     Indication: PROPHYLAXIS
     Dates: start: 2018, end: 2018

REACTIONS (4)
  - Osteoarthritis [Unknown]
  - Pre-existing condition improved [Recovering/Resolving]
  - Therapeutic response unexpected [Unknown]
  - Pyrexia [Not Recovered/Not Resolved]
